FAERS Safety Report 15337993 (Version 1)
Quarter: 2018Q3

REPORT INFORMATION
  Report Type: Spontaneous
  Country: US (occurrence: US)
  Receive Date: 20180831
  Receipt Date: 20180831
  Transmission Date: 20181010
  Serious: No
  Sender: FDA-Public Use
  Company Number: PHEH2018US035336

PATIENT
  Age: 71 Year
  Sex: Male

DRUGS (2)
  1. AFINITOR [Suspect]
     Active Substance: EVEROLIMUS
     Indication: RENAL CANCER
     Dosage: 5 MG, QD
     Route: 048
     Dates: start: 20180727, end: 20180811
  2. LENVATINIB [Suspect]
     Active Substance: LENVATINIB
     Indication: RENAL CANCER
     Dosage: 10 MG, QD
     Route: 048
     Dates: start: 20180727, end: 20180811

REACTIONS (9)
  - Oedema peripheral [Unknown]
  - Hypokinesia [Not Recovered/Not Resolved]
  - Blood pressure increased [Unknown]
  - Headache [Unknown]
  - Depressed mood [Not Recovered/Not Resolved]
  - Asthenia [Unknown]
  - Cough [Recovering/Resolving]
  - Decreased appetite [Unknown]
  - Weight decreased [Unknown]

NARRATIVE: CASE EVENT DATE: 20180810
